FAERS Safety Report 9911230 (Version 1)
Quarter: 2014Q1

REPORT INFORMATION
  Report Type: Spontaneous
  Country: US (occurrence: US)
  Receive Date: 20140219
  Receipt Date: 20140219
  Transmission Date: 20141002
  Serious: Yes (Other)
  Sender: FDA-Public Use
  Company Number: US-ACTAVIS-2014-02449

PATIENT
  Age: 80 Year
  Sex: Male

DRUGS (11)
  1. VALPROIC ACID (UNKNOWN) [Suspect]
     Indication: SCHIZOPHRENIA
     Dosage: 3000 MG, DAILY
     Route: 065
  2. VALPROIC ACID (UNKNOWN) [Suspect]
     Indication: COMPLEX PARTIAL SEIZURES
     Dosage: 2000 MG, DAILY
     Route: 065
  3. ISONIAZID [Suspect]
     Indication: TUBERCULIN TEST POSITIVE
     Dosage: 300 MG, DAILY
     Route: 065
  4. QUETIAPINE [Concomitant]
     Indication: SCHIZOPHRENIA
     Dosage: 300 MG, DAILY
     Route: 065
  5. QUETIAPINE [Concomitant]
     Dosage: 150 MG, DAILY
     Route: 065
  6. OXYCODONE [Concomitant]
     Indication: PRODUCT USED FOR UNKNOWN INDICATION
     Dosage: LOW DOSE
     Route: 065
  7. TAMSULOSIN [Concomitant]
     Indication: PRODUCT USED FOR UNKNOWN INDICATION
     Dosage: UNK
     Route: 065
  8. FINASTERIDE [Concomitant]
     Indication: PRODUCT USED FOR UNKNOWN INDICATION
     Dosage: UNK
     Route: 065
  9. OMEPRAZOLE [Concomitant]
     Indication: PRODUCT USED FOR UNKNOWN INDICATION
     Dosage: UNK
     Route: 065
  10. VITAMIN B 12 [Concomitant]
     Indication: PRODUCT USED FOR UNKNOWN INDICATION
     Dosage: UNK
     Route: 051
  11. PYRIDOXINE [Concomitant]
     Indication: PRODUCT USED FOR UNKNOWN INDICATION
     Dosage: 50 MG, DAILY
     Route: 065

REACTIONS (9)
  - Lethargy [Recovered/Resolved]
  - Abnormal loss of weight [Unknown]
  - Decreased appetite [Recovered/Resolved]
  - Dysarthria [Recovered/Resolved]
  - Anticonvulsant drug level increased [Recovered/Resolved]
  - Hyperammonaemia [Not Recovered/Not Resolved]
  - Drooling [Recovered/Resolved]
  - Drug interaction [Unknown]
  - Off label use [Unknown]
